FAERS Safety Report 18567366 (Version 2)
Quarter: 2020Q4

REPORT INFORMATION
  Report Type: Report from Study
  Country: ES (occurrence: ES)
  Receive Date: 20201202
  Receipt Date: 20201216
  Transmission Date: 20210114
  Serious: Yes (Hospitalization)
  Sender: FDA-Public Use
  Company Number: ES-ROCHE-2719027

PATIENT
  Age: 74 Year
  Sex: Male
  Weight: 69 kg

DRUGS (27)
  1. MTIG 7192A [Suspect]
     Active Substance: TIRAGOLUMAB
     Indication: METASTATIC NEOPLASM
     Dosage: (MOST RECENT DOSE AT 01:20 PM)
     Route: 042
     Dates: start: 20201112
  2. CARBOPLATIN. [Concomitant]
     Active Substance: CARBOPLATIN
     Indication: NEOPLASM MALIGNANT
     Dates: start: 20200830, end: 20201031
  3. PARACETAMOL [Concomitant]
     Active Substance: ACETAMINOPHEN
     Indication: TUMOUR PAIN
     Route: 048
     Dates: start: 20201021, end: 20201118
  4. CISPLATIN. [Concomitant]
     Active Substance: CISPLATIN
     Indication: NEOPLASM MALIGNANT
     Route: 042
     Dates: start: 20200830, end: 20201031
  5. OMEPRAZOL [Concomitant]
     Active Substance: OMEPRAZOLE
     Route: 042
  6. METAMIZOL [Concomitant]
     Active Substance: METAMIZOLE SODIUM
     Route: 042
  7. OLANZAPINE. [Concomitant]
     Active Substance: OLANZAPINE
     Route: 048
  8. METOCLOPRAMIDE. [Concomitant]
     Active Substance: METOCLOPRAMIDE
     Route: 042
  9. METOCLOPRAMIDE. [Concomitant]
     Active Substance: METOCLOPRAMIDE
     Route: 048
  10. ATEZOLIZUMAB. [Suspect]
     Active Substance: ATEZOLIZUMAB
     Indication: METASTATIC NEOPLASM
     Dosage: (MOST RECENT DOSE AT 10:50 AM)
     Route: 041
     Dates: start: 20201112
  11. PACLITAXEL. [Suspect]
     Active Substance: PACLITAXEL
     Indication: METASTATIC NEOPLASM
     Dosage: DOSE LAST STUDY DRUG ADMIN PRIOR AE 352 MG
     Route: 042
     Dates: start: 20201112
  12. PARACETAMOL [Concomitant]
     Active Substance: ACETAMINOPHEN
     Route: 048
  13. ZALDIAR [Concomitant]
     Active Substance: ACETAMINOPHEN\TRAMADOL HYDROCHLORIDE
     Indication: TUMOUR PAIN
     Route: 048
     Dates: start: 20201106, end: 20201118
  14. OMEPRAZOL [Concomitant]
     Active Substance: OMEPRAZOLE
     Route: 048
  15. METAMIZOL [Concomitant]
     Active Substance: METAMIZOLE SODIUM
     Indication: TUMOUR PAIN
     Route: 042
     Dates: start: 20201119
  16. DIAZEPAM. [Concomitant]
     Active Substance: DIAZEPAM
     Route: 048
  17. OMEPRAZOL [Concomitant]
     Active Substance: OMEPRAZOLE
     Route: 042
     Dates: start: 20201120
  18. ENOXAPARIN [Concomitant]
     Active Substance: ENOXAPARIN
     Route: 058
  19. PARACETAMOL [Concomitant]
     Active Substance: ACETAMINOPHEN
     Route: 042
     Dates: start: 20201119
  20. METAMIZOL [Concomitant]
     Active Substance: METAMIZOLE SODIUM
     Route: 048
  21. TAZOBACTAM [Concomitant]
     Active Substance: TAZOBACTAM
     Route: 042
     Dates: start: 20201119
  22. CARBOPLATIN. [Suspect]
     Active Substance: CARBOPLATIN
     Indication: METASTATIC NEOPLASM
     Dosage: DOSE LAST STUDY DRUG ADMIN PRIOR AE 553.72 MG
     Route: 042
     Dates: start: 20201112
  23. PARACETAMOL [Concomitant]
     Active Substance: ACETAMINOPHEN
     Route: 048
  24. FILGRASTIM [Concomitant]
     Active Substance: FILGRASTIM
     Indication: NEUTROPENIA
     Route: 058
     Dates: start: 20201120
  25. GEMCITABINE. [Concomitant]
     Active Substance: GEMCITABINE
     Indication: NEOPLASM MALIGNANT
     Dates: start: 20200830, end: 20201031
  26. OMEPRAZOL [Concomitant]
     Active Substance: OMEPRAZOLE
     Route: 042
     Dates: start: 20201119, end: 20201119
  27. PIPERACILIN [Concomitant]
     Route: 042
     Dates: start: 20201119

REACTIONS (1)
  - Ileus [Recovered/Resolved]

NARRATIVE: CASE EVENT DATE: 20201117
